APPROVED DRUG PRODUCT: CARBAMAZEPINE
Active Ingredient: CARBAMAZEPINE
Strength: 400MG
Dosage Form/Route: TABLET, EXTENDED RELEASE;ORAL
Application: A216193 | Product #003
Applicant: AJANTA PHARMA LTD
Approved: Mar 24, 2023 | RLD: No | RS: No | Type: DISCN